FAERS Safety Report 4469432-X (Version None)
Quarter: 2004Q4

REPORT INFORMATION
  Report Type: 
  Country: None (occurrence: None)
  Receive Date: 20041005
  Receipt Date: 20040924
  Transmission Date: 20050328
  Serious: Yes (Hospitalization, Other)
  Sender: FDA-Public Use
  Company Number: 200410465BFR

PATIENT
  Age: 64 Year
  Sex: Male

DRUGS (6)
  1. IZILOX (MOXIFLOXACIN HYDROCHLORIDE) [Suspect]
     Indication: BRONCHITIS
     Dosage: 400 MG, TOTAL DAILY, ORAL
     Route: 048
     Dates: start: 20040902, end: 20040906
  2. KETEK [Concomitant]
  3. PREVISCAN [Concomitant]
  4. COZAAR [Concomitant]
  5. AMIODARONE HYDROCHLORIDE [Concomitant]
  6. CALCIPARINE [Concomitant]

REACTIONS (8)
  - ACTIVITIES OF DAILY LIVING IMPAIRED [None]
  - DISTURBANCE IN ATTENTION [None]
  - HAEMATOMA [None]
  - INCOHERENT [None]
  - INSOMNIA [None]
  - INTERNATIONAL NORMALISED RATIO INCREASED [None]
  - MUSCLE RUPTURE [None]
  - TENDON RUPTURE [None]
